FAERS Safety Report 5816126-1 (Version None)
Quarter: 2008Q3

REPORT INFORMATION
  Report Type: 
  Country: None (occurrence: None)
  Receive Date: 20080721
  Receipt Date: 20080710
  Transmission Date: 20090109
  Serious: Yes (Hospitalization)
  Sender: FDA-Public Use
  Company Number: FR-AVENTIS-200813540EU

PATIENT
  Age: 74 Year
  Sex: Female
  Weight: 54 kg

DRUGS (5)
  1. FLUDEX                             /00340101/ [Suspect]
     Indication: ESSENTIAL HYPERTENSION
     Route: 048
     Dates: end: 20080517
  2. MEFENACID [Suspect]
     Indication: SPINAL COLUMN STENOSIS
     Dosage: DOSE: UNK
     Route: 048
     Dates: end: 20080501
  3. IRFEN [Suspect]
     Indication: SPINAL COLUMN STENOSIS
     Dates: end: 20080501
  4. SIRDALUD [Concomitant]
  5. OXAZEPAM [Concomitant]
     Dates: end: 20080517

REACTIONS (2)
  - INAPPROPRIATE ANTIDIURETIC HORMONE SECRETION [None]
  - MEDICATION ERROR [None]
